FAERS Safety Report 14731783 (Version 2)
Quarter: 2018Q2

REPORT INFORMATION
  Report Type: Spontaneous
  Country: GB (occurrence: GB)
  Receive Date: 20180407
  Receipt Date: 20180418
  Transmission Date: 20180711
  Serious: Yes (Other)
  Sender: FDA-Public Use
  Company Number: GB-CONCORDIA PHARMACEUTICALS INC.-GSH201804-001156

PATIENT
  Age: 76 Month
  Sex: Female

DRUGS (4)
  1. PREDNISOLONE. [Suspect]
     Active Substance: PREDNISOLONE
     Indication: UVEITIS
     Route: 048
  2. PREDNISOLONE. [Suspect]
     Active Substance: PREDNISOLONE
     Indication: UVEITIS
     Dosage: TAPERED TO STOP OVER 3 MONTHS
     Route: 047
  3. METHOTREXATE. [Concomitant]
     Active Substance: METHOTREXATE
  4. PREDNISOLONE. [Suspect]
     Active Substance: PREDNISOLONE
     Dosage: THREE TIMES A DAY TO BOTH EYES (8 HR)
     Route: 047

REACTIONS (2)
  - Idiopathic intracranial hypertension [Recovering/Resolving]
  - Drug withdrawal syndrome [Recovering/Resolving]
